FAERS Safety Report 18204926 (Version 1)
Quarter: 2020Q3

REPORT INFORMATION
  Report Type: Spontaneous
  Country: US (occurrence: US)
  Receive Date: 20200827
  Receipt Date: 20200827
  Transmission Date: 20201103
  Serious: Yes (Death, Other)
  Sender: FDA-Public Use
  Company Number: US-PURDUE-USA-2020-0163078

PATIENT
  Age: 38 Year
  Sex: Female

DRUGS (29)
  1. ACETAMINOPHEN AND CODEINE [Suspect]
     Active Substance: ACETAMINOPHEN\CODEINE PHOSPHATE
     Dosage: 330 MG, Q12H PRN
     Route: 048
  2. CLONAZEPAM. [Suspect]
     Active Substance: CLONAZEPAM
     Indication: PRODUCT USED FOR UNKNOWN INDICATION
     Dosage: UNKNOWN
     Route: 048
  3. ZOLOFT [Concomitant]
     Active Substance: SERTRALINE HYDROCHLORIDE
     Indication: ANXIETY
     Dosage: 50 MG, DAILY
     Route: 048
  4. OXYCODONE HCL TABLETS (RHODES 91?490) [Suspect]
     Active Substance: OXYCODONE HYDROCHLORIDE
     Dosage: 5 MG, Q8H
     Route: 048
  5. ACETAMINOPHEN AND CODEINE [Suspect]
     Active Substance: ACETAMINOPHEN\CODEINE PHOSPHATE
     Indication: BACK PAIN
     Dosage: 45 MG, Q8H PRN
     Route: 048
     Dates: start: 20101118
  6. ALCOHOL. [Suspect]
     Active Substance: ALCOHOL
     Indication: PRODUCT USED FOR UNKNOWN INDICATION
     Dosage: UNKNOWN
     Route: 048
  7. XANAX [Suspect]
     Active Substance: ALPRAZOLAM
     Indication: ANXIETY
     Dosage: 0.5 MG, Q8H
     Route: 048
     Dates: start: 20111112, end: 20120309
  8. OXYCODONE HCL TABLETS (RHODES 91?490) [Suspect]
     Active Substance: OXYCODONE HYDROCHLORIDE
     Indication: BACK PAIN
     Dosage: 5 MG, Q6H
     Route: 048
     Dates: start: 20140527
  9. HYDROCODONE BITARTRATE AND ACETAMINOPHEN [Suspect]
     Active Substance: ACETAMINOPHEN\HYDROCODONE BITARTRATE
     Indication: BACK PAIN
     Dosage: 330 MG, BID PRN
     Route: 048
     Dates: start: 20120517, end: 20120709
  10. VICODIN [Suspect]
     Active Substance: ACETAMINOPHEN\HYDROCODONE BITARTRATE
     Dosage: 330 MG, TID PRN
     Route: 048
     Dates: start: 20120709
  11. CODEINE [Concomitant]
     Active Substance: CODEINE
     Indication: BACK PAIN
     Dosage: 30 MG, TID
     Route: 048
  12. FLONASE [Concomitant]
     Active Substance: FLUTICASONE PROPIONATE
     Indication: RHINITIS ALLERGIC
     Dosage: 2 SPRAY, DAILY
     Route: 045
  13. OXYCODONE HCL CR TABLETS (SIMILAR TO NDA 22?272) [Suspect]
     Active Substance: OXYCODONE HYDROCHLORIDE
     Indication: PRODUCT USED FOR UNKNOWN INDICATION
     Dosage: UNKNOWN
     Route: 048
  14. OXYCODONE HCL TABLETS (RHODES 91?490) [Suspect]
     Active Substance: OXYCODONE HYDROCHLORIDE
     Indication: MIGRAINE
     Dosage: 5 MG, BID
     Route: 048
  15. ALPRAZOLAM. [Suspect]
     Active Substance: ALPRAZOLAM
     Dosage: 0.5 MG, BID
     Route: 048
     Dates: start: 20111112
  16. ALPRAZOLAM. [Suspect]
     Active Substance: ALPRAZOLAM
     Dosage: 2 MG, BID
     Route: 048
     Dates: start: 20111112
  17. XANAX [Suspect]
     Active Substance: ALPRAZOLAM
     Dosage: 1 MG, PRN
     Route: 048
     Dates: start: 20111112, end: 20120309
  18. ZOLOFT [Concomitant]
     Active Substance: SERTRALINE HYDROCHLORIDE
     Dosage: 150 MG, DAILY
     Route: 048
  19. PAROXETINE. [Concomitant]
     Active Substance: PAROXETINE
     Indication: ANXIETY
     Dosage: 20 MG, AM
     Route: 048
     Dates: start: 20151112
  20. OXYCODONE HCL TABLETS (RHODES 91?490) [Suspect]
     Active Substance: OXYCODONE HYDROCHLORIDE
     Dosage: 5 MG, Q4H
     Route: 048
  21. HYDROCODONE BITARTRATE AND ACETAMINOPHEN [Suspect]
     Active Substance: ACETAMINOPHEN\HYDROCODONE BITARTRATE
     Dosage: 330 MG, TID PRN
     Route: 048
     Dates: start: 20120709
  22. ACETAMINOPHEN AND CODEINE [Suspect]
     Active Substance: ACETAMINOPHEN\CODEINE PHOSPHATE
     Dosage: 330 MG, Q8H PRN
     Route: 048
  23. XANAX [Suspect]
     Active Substance: ALPRAZOLAM
     Dosage: 0.5 MG, DAILY
     Route: 048
     Dates: start: 20120309
  24. VICODIN [Suspect]
     Active Substance: ACETAMINOPHEN\HYDROCODONE BITARTRATE
     Indication: BACK PAIN
     Dosage: 330 MG, BID PRN
     Route: 048
     Dates: start: 20120517, end: 20120709
  25. ZOLOFT [Concomitant]
     Active Substance: SERTRALINE HYDROCHLORIDE
     Indication: DEPRESSION
     Dosage: 100 MG, DAILY
     Route: 048
  26. HYDROCODONE BITARTRATE (SIMILAR TO NDA 206627) [Suspect]
     Active Substance: HYDROCODONE BITARTRATE
     Indication: DENTAL EXAMINATION
     Dosage: UNKNOWN
     Route: 048
  27. ALPRAZOLAM. [Suspect]
     Active Substance: ALPRAZOLAM
     Indication: ANXIETY
     Dosage: 0.5 MG, Q8H PRN
     Route: 048
     Dates: start: 20111112
  28. ALPRAZOLAM. [Suspect]
     Active Substance: ALPRAZOLAM
     Dosage: 1 MG, TID PRN
     Route: 048
     Dates: start: 20111112
  29. IBUPROFEN. [Concomitant]
     Active Substance: IBUPROFEN
     Indication: BACK PAIN
     Dosage: 200 MG, TID
     Route: 048

REACTIONS (48)
  - Pulmonary congestion [Unknown]
  - Brain oedema [Unknown]
  - Contusion [Unknown]
  - Nausea [Unknown]
  - Essential hypertension [Unknown]
  - Depression [Unknown]
  - Overdose [Unknown]
  - Pulmonary oedema [Unknown]
  - Anxiety [Unknown]
  - Cough [Unknown]
  - Hyperhidrosis [Unknown]
  - Insomnia [Unknown]
  - Joint injury [Unknown]
  - Pulmonary embolism [Unknown]
  - Major depression [Unknown]
  - Arteriosclerosis coronary artery [Unknown]
  - Back pain [Unknown]
  - Nasopharyngitis [Unknown]
  - Chills [Unknown]
  - Ligament sprain [Unknown]
  - Joint swelling [Unknown]
  - Metrorrhagia [Unknown]
  - Drug dependence [Unknown]
  - Toxicity to various agents [Fatal]
  - Hypothyroidism [Unknown]
  - Fall [Unknown]
  - Abortion spontaneous [Unknown]
  - Nightmare [Unknown]
  - Retching [Unknown]
  - Rhinitis allergic [Unknown]
  - Generalised anxiety disorder [Unknown]
  - Abortion [Unknown]
  - Sleep disorder [Unknown]
  - Panic attack [Unknown]
  - Dysmenorrhoea [Unknown]
  - Emotional distress [Unknown]
  - Hepatic steatosis [Unknown]
  - Myalgia [Unknown]
  - Dizziness [Unknown]
  - Gastroenteritis viral [Unknown]
  - Autoimmune thyroiditis [Unknown]
  - Pancreatic haemorrhage [Unknown]
  - Nasal congestion [Unknown]
  - Vomiting [Unknown]
  - Fatigue [Unknown]
  - Breast mass [Unknown]
  - Panic disorder [Unknown]
  - Abdominal pain [Unknown]

NARRATIVE: CASE EVENT DATE: 20140919
